FAERS Safety Report 23252143 (Version 3)
Quarter: 2024Q2

REPORT INFORMATION
  Report Type: Spontaneous
  Country: US (occurrence: US)
  Receive Date: 20231201
  Receipt Date: 20240402
  Transmission Date: 20240716
  Serious: No
  Sender: FDA-Public Use
  Company Number: US-SA-SAC20231129000497

PATIENT
  Age: 71 Year
  Sex: Female

DRUGS (1)
  1. DUPIXENT [Suspect]
     Active Substance: DUPILUMAB
     Indication: Dermatitis atopic
     Dosage: 300 MG, QOW
     Route: 058

REACTIONS (6)
  - Injection site nodule [Unknown]
  - Pruritus [Unknown]
  - Injection site pruritus [Recovered/Resolved]
  - Injection site pain [Unknown]
  - Injection site bruising [Unknown]
  - Injection site erythema [Recovered/Resolved]
